FAERS Safety Report 10525183 (Version 1)
Quarter: 2014Q4

REPORT INFORMATION
  Report Type: Spontaneous
  Country: JP (occurrence: None)
  Receive Date: 20141015
  Receipt Date: 20141015
  Transmission Date: 20150528
  Serious: Yes (Death)
  Sender: FDA-Public Use
  Company Number: FK201403981

PATIENT
  Age: 60 Year
  Sex: Female

DRUGS (1)
  1. PROPOFOL FRESNIUS (NOT SPECIFIED) PROPOFOL [Suspect]
     Active Substance: PROPOFOL
     Indication: INDUCTION OF ANAESTHESIA
     Dosage: (NOT OTHERWISE SPECIFIED)
     Route: 042

REACTIONS (4)
  - Ventricular tachycardia [None]
  - Blood pressure decreased [None]
  - Respiratory depression [None]
  - Cardiovascular insufficiency [None]
